FAERS Safety Report 4682105-3 (Version None)
Quarter: 2005Q2

REPORT INFORMATION
  Report Type: 
  Country: None (occurrence: None)
  Receive Date: 20050602
  Receipt Date: 20050513
  Transmission Date: 20051028
  Serious: Yes (Other)
  Sender: FDA-Public Use
  Company Number: CAR_0021_2005

PATIENT
  Age: 57 Year

DRUGS (2)
  1. FAMOTIDINE [Suspect]
     Indication: GASTRIC ULCER
     Dosage: 20 MG BID PO
     Route: 048
  2. LANSOPRAZOLE [Concomitant]

REACTIONS (2)
  - RETINOPATHY [None]
  - VISUAL ACUITY REDUCED [None]
